FAERS Safety Report 7769010-0 (Version None)
Quarter: 2011Q3

REPORT INFORMATION
  Report Type: 
  Country: None (occurrence: None)
  Receive Date: 20110922
  Receipt Date: 20110712
  Transmission Date: 20111222
  Serious: Yes (Other)
  Sender: FDA-Public Use
  Company Number: US-ASTRAZENECA-2011SE41486

PATIENT
  Age: 49 Year
  Sex: Male

DRUGS (4)
  1. SEROQUEL [Suspect]
     Indication: BIPOLAR DISORDER
     Route: 048
     Dates: start: 20070101
  2. DEPAKOTE [Concomitant]
  3. VALIUM [Concomitant]
  4. LITHIUM CARBONATE [Concomitant]

REACTIONS (7)
  - DRUG DOSE OMISSION [None]
  - MANIA [None]
  - PSYCHOTIC DISORDER [None]
  - INSOMNIA [None]
  - WRONG TECHNIQUE IN DRUG USAGE PROCESS [None]
  - DRUG DEPENDENCE [None]
  - AGITATION [None]
